FAERS Safety Report 6269357-3 (Version None)
Quarter: 2009Q3

REPORT INFORMATION
  Report Type: 
  Country: None (occurrence: None)
  Receive Date: 20090715
  Receipt Date: 20090709
  Transmission Date: 20100115
  Serious: Yes (Other)
  Sender: FDA-Public Use
  Company Number: ES-WATSON-2009-05318

PATIENT
  Age: 73 Year
  Sex: Female

DRUGS (4)
  1. FENTANYL-25 [Suspect]
     Indication: PAIN
     Dosage: 1 PATCH, Q72H
     Route: 062
     Dates: start: 20070301
  2. FLUOXETINE [Suspect]
     Indication: DEPRESSION
     Dosage: 20 MG, DAILY
     Dates: start: 20070301
  3. TRAMADOL HCL [Suspect]
     Indication: PAIN
     Dosage: 50 MG, Q8H
     Dates: start: 20070301
  4. LINEZOLID [Suspect]
     Indication: INFECTION
     Dosage: 600 MG, Q12H
     Dates: start: 20070301

REACTIONS (2)
  - DRUG INTERACTION [None]
  - SEROTONIN SYNDROME [None]
